FAERS Safety Report 6500245-0 (Version None)
Quarter: 2009Q4

REPORT INFORMATION
  Report Type: 
  Country: None (occurrence: None)
  Receive Date: 20091216
  Receipt Date: 20091210
  Transmission Date: 20100525
  Serious: Yes (Other)
  Sender: FDA-Public Use
  Company Number: GB-PFIZER INC-2009288732

PATIENT
  Age: 70 Year
  Sex: Female

DRUGS (4)
  1. AROMASIN [Suspect]
     Dosage: UNK
  2. BENDROFLUAZIDE [Concomitant]
     Dosage: 2.5 MG, 1X/DAY
  3. LEVOTHYROXINE SODIUM [Concomitant]
     Dosage: 50 UG, 1X/DAY
  4. DEXAMETHASONE [Concomitant]
     Route: 047

REACTIONS (1)
  - NECROTISING SCLERITIS [None]
